FAERS Safety Report 7740700-9 (Version None)
Quarter: 2011Q3

REPORT INFORMATION
  Report Type: 
  Country: None (occurrence: None)
  Receive Date: 20110909
  Receipt Date: 20110830
  Transmission Date: 20111222
  Serious: Yes (Death)
  Sender: FDA-Public Use
  Company Number: KR-PFIZER INC-2011203016

PATIENT
  Age: 52 Year
  Sex: Male

DRUGS (3)
  1. S-1 [Suspect]
     Indication: COLORECTAL CANCER
     Dosage: 40 MG/M2, 2X/DAY ON DAYS 1-14 AND 21-35 EVERY 6 WEEKS
     Route: 048
  2. DEXAMETHASONE [Concomitant]
     Indication: PROPHYLAXIS OF NAUSEA AND VOMITING
     Dosage: 10 MG, UNK
     Route: 042
  3. IRINOTECAN HCL [Suspect]
     Indication: COLORECTAL CANCER
     Dosage: 150 MG/M2 ON DAYS 1, 15, AND 29 EVERY 6 WEEKS
     Route: 042

REACTIONS (1)
  - DEATH [None]
